FAERS Safety Report 5501440-X (Version None)
Quarter: 2007Q4

REPORT INFORMATION
  Report Type: 
  Country: None (occurrence: None)
  Receive Date: 20071018
  Receipt Date: 20070305
  Transmission Date: 20080405
  Serious: Yes (Other)
  Sender: FDA-Public Use
  Company Number: 2007017756

PATIENT
  Sex: Female

DRUGS (7)
  1. NEURONTIN [Suspect]
     Indication: PAIN
     Dosage: (100 MG, 1 IN 1 D)
     Dates: start: 20070225, end: 20070228
  2. LYRICA [Suspect]
     Indication: INTERVERTEBRAL DISC PROTRUSION
     Dosage: 150 MG (75 MG, 2 IN 1 D)
     Dates: start: 20070228
  3. LYRICA [Suspect]
     Indication: NEURALGIA
     Dosage: 150 MG (75 MG, 2 IN 1 D)
     Dates: start: 20070228
  4. PROZAC [Concomitant]
  5. VALSARTAN [Concomitant]
  6. ESTRATEST [Concomitant]
  7. PREMARIN [Concomitant]

REACTIONS (14)
  - CONFUSIONAL STATE [None]
  - DRY EYE [None]
  - EYE PAIN [None]
  - HEADACHE [None]
  - HYPERSENSITIVITY [None]
  - HYPOAESTHESIA [None]
  - IRRITABILITY [None]
  - MEMORY IMPAIRMENT [None]
  - NAUSEA [None]
  - OCULAR HYPERAEMIA [None]
  - OEDEMA PERIPHERAL [None]
  - SUICIDAL IDEATION [None]
  - TREMOR [None]
  - VISUAL DISTURBANCE [None]
